FAERS Safety Report 21158246 (Version 4)
Quarter: 2022Q3

REPORT INFORMATION
  Report Type: Other
  Country: US (occurrence: None)
  Receive Date: 20220801
  Receipt Date: 20220811
  Transmission Date: 20221027
  Serious: Yes (Other)
  Sender: FDA-Public Use
  Company Number: US-ROCHE-2174432

PATIENT
  Age: 44 Year
  Sex: Female

DRUGS (38)
  1. RITUXAN [Suspect]
     Active Substance: RITUXIMAB
     Indication: Rheumatoid arthritis
     Dosage: ONGOING: NO
     Route: 042
     Dates: start: 201801, end: 201801
  2. RITUXAN [Suspect]
     Active Substance: RITUXIMAB
     Dosage: ONGOING UNKNOWN
     Route: 042
  3. PREDNISONE [Suspect]
     Active Substance: PREDNISONE
     Indication: Product used for unknown indication
     Route: 065
  4. XOLAIR [Suspect]
     Active Substance: OMALIZUMAB
     Indication: Urticarial vasculitis
     Route: 065
  5. ACTEMRA [Suspect]
     Active Substance: TOCILIZUMAB
     Indication: Rheumatoid arthritis
     Dosage: ADMINISTERED OVER 40 MIN
     Route: 042
  6. EPINEPHRINE [Concomitant]
     Active Substance: EPINEPHRINE
     Indication: Hypersensitivity
     Dosage: ONGOING: UNKNOWN
  7. ALBUTEROL [Concomitant]
     Active Substance: ALBUTEROL
     Indication: Dyspnoea
     Dosage: ONGOING: UNKNOWN
  8. AMLODIPINE [Concomitant]
     Active Substance: AMLODIPINE BESYLATE
  9. ASPIRIN [Concomitant]
     Active Substance: ASPIRIN
  10. ATORVASTATIN [Concomitant]
     Active Substance: ATORVASTATIN
  11. BACLOFEN [Concomitant]
     Active Substance: BACLOFEN
  12. BIOTIN [Concomitant]
     Active Substance: BIOTIN
  13. CALCIUM [Concomitant]
     Active Substance: CALCIUM
  14. COLCHICINE [Concomitant]
     Active Substance: COLCHICINE
  15. CORTROSYN [Concomitant]
     Active Substance: COSYNTROPIN
  16. DIPHENHYDRAMINE [Concomitant]
     Active Substance: DIPHENHYDRAMINE
  17. FAMOTIDINE [Concomitant]
     Active Substance: FAMOTIDINE
  18. FLUTICASONE [Concomitant]
     Active Substance: FLUTICASONE
  19. FOLIC ACID [Concomitant]
     Active Substance: FOLIC ACID
  20. GRANISETRON [Concomitant]
     Active Substance: GRANISETRON
  21. HYDROCHLOROTHIAZIDE [Concomitant]
     Active Substance: HYDROCHLOROTHIAZIDE
  22. HYDROCODONE [Concomitant]
     Active Substance: HYDROCODONE
  23. HYDROCORTISONE [Concomitant]
     Active Substance: HYDROCORTISONE
  24. ISOSORBIDE [Concomitant]
     Active Substance: ISOSORBIDE
  25. LEVOCETRIZINE HYDROCHLORIDE [Concomitant]
  26. LIDOCAINE [Concomitant]
     Active Substance: LIDOCAINE
  27. LOPERAMIDE [Concomitant]
     Active Substance: LOPERAMIDE
  28. METHOTREXATE [Concomitant]
     Active Substance: METHOTREXATE
  29. METOPROLOL SUCCINATE [Concomitant]
     Active Substance: METOPROLOL SUCCINATE
  30. MONTELUKAST [Concomitant]
     Active Substance: MONTELUKAST SODIUM
  31. MORPHINE [Concomitant]
     Active Substance: MORPHINE
  32. MUPIROCIN [Concomitant]
     Active Substance: MUPIROCIN
  33. NYSTATIN [Concomitant]
     Active Substance: NYSTATIN
  34. ONDANSETRON [Concomitant]
     Active Substance: ONDANSETRON
  35. PRIMIDONE [Concomitant]
     Active Substance: PRIMIDONE
  36. RISEDRONATE SODIUM [Concomitant]
     Active Substance: RISEDRONATE SODIUM
  37. SODIUM CHLORIDE [Concomitant]
     Active Substance: SODIUM CHLORIDE
  38. TEMAZEPAM [Concomitant]
     Active Substance: TEMAZEPAM

REACTIONS (18)
  - Anaphylactic shock [Recovering/Resolving]
  - Urticarial vasculitis [Unknown]
  - Cardiac arrest [Unknown]
  - Pharyngeal swelling [Unknown]
  - Erythema [Recovering/Resolving]
  - Swelling [Recovering/Resolving]
  - Blood test abnormal [Unknown]
  - Pain [Recovering/Resolving]
  - Dyspnoea [Recovering/Resolving]
  - Illness [Recovering/Resolving]
  - Flushing [Unknown]
  - Rash [Not Recovered/Not Resolved]
  - Heart rate increased [Unknown]
  - Cortisol decreased [Unknown]
  - Feeling hot [Unknown]
  - Urticaria [Not Recovered/Not Resolved]
  - COVID-19 [Unknown]
  - Off label use [Unknown]

NARRATIVE: CASE EVENT DATE: 20180101
